FAERS Safety Report 9600284 (Version 1)
Quarter: 2013Q4

REPORT INFORMATION
  Report Type: Spontaneous
  Country: US (occurrence: US)
  Receive Date: 20131004
  Receipt Date: 20131004
  Transmission Date: 20140711
  Serious: No
  Sender: FDA-Public Use
  Company Number: US-AMGEN-USASP2013034060

PATIENT
  Age: 64 Year
  Sex: Female
  Weight: 67.12 kg

DRUGS (13)
  1. ENBREL [Suspect]
     Indication: PRODUCT USED FOR UNKNOWN INDICATION
     Dosage: 50 MG, QWK
     Route: 058
  2. METHOTREXATE [Concomitant]
     Dosage: 2.5 MG, UNK
  3. PREDNISONE [Concomitant]
     Dosage: 5 MG, UNK
  4. OMEPRAZOLE [Concomitant]
     Dosage: 20 MG, UNK
  5. FOLIC ACID [Concomitant]
     Dosage: 1 MG, UNK
  6. VITAMIN E                          /00110501/ [Concomitant]
     Dosage: 100 UNIT, UNK
  7. IRON [Concomitant]
     Dosage: 18 MG, UNK
  8. VITAMIN D                          /00107901/ [Concomitant]
     Dosage: 400 UNIT, UNK
  9. ALEVE [Concomitant]
     Dosage: 220 MG, UNK
  10. ONE A DAY                          /02262701/ [Concomitant]
     Dosage: UNK, WOMENS
  11. GLUCO + CHONDROITIN [Concomitant]
     Dosage: UNK, 250-200
  12. VITAMIN C                          /00008001/ [Concomitant]
     Dosage: 500 MG, UNK
  13. CLARITINE S [Concomitant]

REACTIONS (4)
  - Nausea [Unknown]
  - Vomiting [Unknown]
  - Diarrhoea [Unknown]
  - Headache [Unknown]
